FAERS Safety Report 10153751 (Version 2)
Quarter: 2014Q2

REPORT INFORMATION
  Report Type: Spontaneous
  Country: GR (occurrence: GR)
  Receive Date: 20140506
  Receipt Date: 20140530
  Transmission Date: 20141212
  Serious: Yes (Other)
  Sender: FDA-Public Use
  Company Number: GR-ROCHE-1393876

PATIENT
  Age: 44 Year
  Sex: Male

DRUGS (2)
  1. XOLAIR [Suspect]
     Indication: ASTHMA
     Route: 065
  2. XOLAIR [Suspect]
     Route: 065
     Dates: start: 20140512

REACTIONS (3)
  - Injection site eczema [Recovered/Resolved]
  - Conjunctivitis allergic [Recovered/Resolved]
  - Rhinitis allergic [Recovered/Resolved]
